FAERS Safety Report 5854476-3 (Version None)
Quarter: 2008Q3

REPORT INFORMATION
  Report Type: 
  Country: None (occurrence: None)
  Receive Date: 20080822
  Receipt Date: 20080811
  Transmission Date: 20090109
  Serious: Yes (Hospitalization)
  Sender: FDA-Public Use
  Company Number: US-PFIZER INC-2008066900

PATIENT
  Sex: Female

DRUGS (4)
  1. DEPO-MEDROL [Suspect]
     Indication: SCIATICA
     Dosage: DAILY DOSE:1ML
     Route: 030
     Dates: start: 20080623, end: 20080623
  2. DEPO-MEDROL [Suspect]
     Indication: BACK INJURY
  3. XYLOCAINE [Suspect]
     Indication: SCIATICA
     Dosage: DAILY DOSE:5ML
     Route: 030
     Dates: start: 20080623, end: 20080623
  4. XYLOCAINE [Suspect]
     Indication: BACK INJURY

REACTIONS (1)
  - CELLULITIS [None]
